FAERS Safety Report 17711775 (Version 1)
Quarter: 2020Q2

REPORT INFORMATION
  Report Type: Spontaneous
  Country: DK (occurrence: DK)
  Receive Date: 20200427
  Receipt Date: 20200427
  Transmission Date: 20200714
  Serious: Yes (Hospitalization, Other)
  Sender: FDA-Public Use
  Company Number: DK-BRISTOL-MYERS SQUIBB COMPANY-BMS-2020-033138

PATIENT
  Age: 66 Year
  Sex: Male
  Weight: 89 kg

DRUGS (2)
  1. IPILIMUMAB [Suspect]
     Active Substance: IPILIMUMAB
     Indication: RENAL CANCER
     Dosage: UNK
     Route: 042
     Dates: start: 20200217, end: 20200309
  2. NIVOLUMAB [Suspect]
     Active Substance: NIVOLUMAB
     Indication: RENAL CANCER
     Dosage: ^STYRKE: 240MG/24 ML^
     Route: 042
     Dates: start: 20200217, end: 20200309

REACTIONS (7)
  - Hepatitis [Recovering/Resolving]
  - Fatigue [Unknown]
  - Muscle enzyme increased [Unknown]
  - Arthralgia [Unknown]
  - Myositis [Recovering/Resolving]
  - Hepatic enzyme increased [Unknown]
  - Myalgia [Unknown]

NARRATIVE: CASE EVENT DATE: 2020
